FAERS Safety Report 23303343 (Version 1)
Quarter: 2023Q4

REPORT INFORMATION
  Report Type: Spontaneous
  Country: TW (occurrence: TW)
  Receive Date: 20231215
  Receipt Date: 20231215
  Transmission Date: 20240109
  Serious: Yes (Other)
  Sender: FDA-Public Use
  Company Number: TW-002147023-NVSC2023TW261725

PATIENT
  Age: 67 Year
  Sex: Female

DRUGS (4)
  1. RIBOCICLIB [Suspect]
     Active Substance: RIBOCICLIB
     Indication: Disease progression
     Dosage: 600 MG
     Route: 065
     Dates: start: 20180823, end: 20181003
  2. RIBOCICLIB [Suspect]
     Active Substance: RIBOCICLIB
     Dosage: 400 MG
     Route: 065
     Dates: start: 20181031, end: 20181114
  3. FEMARA [Suspect]
     Active Substance: LETROZOLE
     Indication: HER2 negative breast cancer
     Dosage: UNK
     Route: 065
     Dates: start: 2016, end: 2018
  4. FULVESTRANT [Suspect]
     Active Substance: FULVESTRANT
     Indication: Disease progression
     Dosage: UNK
     Route: 065
     Dates: start: 201808

REACTIONS (2)
  - Hepatic enzyme abnormal [Unknown]
  - Disease progression [Unknown]
